FAERS Safety Report 16901527 (Version 3)
Quarter: 2019Q4

REPORT INFORMATION
  Report Type: Spontaneous
  Country: US (occurrence: US)
  Receive Date: 20191009
  Receipt Date: 20191015
  Transmission Date: 20200122
  Serious: Yes (Death)
  Sender: FDA-Public Use
  Company Number: US-CELGENEUS-USA-20191002797

PATIENT
  Age: 72 Year
  Sex: Male

DRUGS (2)
  1. THALOMID [Suspect]
     Active Substance: THALIDOMIDE
     Indication: OFF LABEL USE
     Dosage: 100 MILLIGRAM
     Route: 048
     Dates: start: 201909, end: 20190921
  2. THALOMID [Suspect]
     Active Substance: THALIDOMIDE
     Indication: LEIOMYOSARCOMA
     Dosage: 50 MILLIGRAM
     Route: 048
     Dates: start: 20190826

REACTIONS (2)
  - Leiomyosarcoma [Fatal]
  - Septic shock [Fatal]

NARRATIVE: CASE EVENT DATE: 2019
